FAERS Safety Report 10179396 (Version 1)
Quarter: 2014Q2

REPORT INFORMATION
  Report Type: Spontaneous
  Country: US (occurrence: None)
  Receive Date: 20140416
  Receipt Date: 20140416
  Transmission Date: 20141212
  Serious: Yes (Other)
  Sender: FDA-Public Use
  Company Number: 163-POMAL-13106064

PATIENT
  Age: 73 Year
  Sex: Female
  Weight: 96.39 kg

DRUGS (31)
  1. POMALYST [Suspect]
     Indication: PLASMA CELL MYELOMA
     Dosage: 2 MG, 21 IN 28 D
     Dates: start: 201306, end: 20131114
  2. BENADRYL (DIPHENHYDRAMINE HYDROCHLORIDE) (UNKNOWN) [Concomitant]
  3. PREDNISONE (PREDNISONE) (UNKNOWN) [Concomitant]
  4. COUMADIN (WARFARIN SODIUM) (UNKNOWN) [Concomitant]
  5. AMBIEN (ZOLPIDEM TARTRATE) (UNKNOWN) [Concomitant]
  6. AQUAPHOR WITH NATURAL HEALING (AQUAPHOR HEALING OINTMENT) (UNKNOWN) [Concomitant]
  7. AVALIDE (KARVEA HCT) (TABLETS) [Concomitant]
  8. COMPLEX VITAMINS (VITAMIN B) (TABLETS) [Concomitant]
  9. CALCIUM 600 +D3 (OS-CAL) (TABLETS) [Concomitant]
  10. CALCIUM-MAGNESIUM-ZINC (MEGA CALCIUM MAGNESIUM WITH ZINK) (TABLETS) [Concomitant]
  11. CHOLECALCIFEROL (COLECALCIFEROL) (UNKNOWN) [Concomitant]
  12. COLACE (DOCUSATE SODIUM) (UNKNOWN) [Concomitant]
  13. COMPLETE MULTIVITAMIN (MULTIVITAMINS) (TABLETS) [Concomitant]
  14. CYANOCOBALAMIN (CYANOCOBALAMIN) (UNKNOWN) [Concomitant]
  15. DEXAMETHASONE (DEXAMETHASONE) (TABLETS) [Concomitant]
  16. FERROUS SULFATE (FERROUS SULFATE) (UNKNOWN) [Concomitant]
  17. FISH OIL (FISH OIL) (UNKNOWN) [Concomitant]
  18. GLUCOSAMINE CHONDROITIN MAXS (GLUCOSAMINE W/CHONDROITIN SULFATE) (TABLETS) [Concomitant]
  19. HAIR, NAILS, + SKIN VITAMIN (VITAMINS) (UNKNOWN) [Concomitant]
  20. HYDROCORTISONE (HYDROCORTISONE) (UNKNOWN) [Concomitant]
  21. LIDOCAINE-PRILOCAINE (EMLA) (UNKNOWN) [Concomitant]
  22. NATURAL VITAMIN E (TOCOPHEROL) (UNKNOWN) [Concomitant]
  23. POTASSIUM CHLORIDE (POTASSIUM CHLORIDE) (UNKNOWN) [Concomitant]
  24. PRILOSEC (OMEPRAZOLE) (UNKNOWN) [Concomitant]
  25. SIMETHICONE (DIMETICONE, ACTIVATED) (UNKNOWN) [Concomitant]
  26. TRAMADOL (TRAMADOL) (UNKNOWN) [Concomitant]
  27. TYLENOL EXTRA STRENGTH (PARACETAMOL) (UNKNOWN) [Concomitant]
  28. TYLENOL-CODEINE #3 (PANADEINE CO) (TABLETS) [Concomitant]
  29. VITAMIN A (RETINOL) (UNKNOWN) [Concomitant]
  30. VITAMIN C (ASCORBIC ACID) (UNKNOWN) [Concomitant]
  31. WHITE PETROLATUM (WHITE SOFT PARAFFIN) (UNKNOWN) [Concomitant]

REACTIONS (2)
  - Rash pruritic [None]
  - Rash macular [None]
